FAERS Safety Report 7788172-2 (Version None)
Quarter: 2011Q3

REPORT INFORMATION
  Report Type: 
  Country: None (occurrence: None)
  Receive Date: 20110930
  Receipt Date: 20110919
  Transmission Date: 20111222
  Serious: Yes (Hospitalization)
  Sender: FDA-Public Use
  Company Number: CA-JNJFOC-20110907501

PATIENT
  Sex: Male
  Weight: 89 kg

DRUGS (3)
  1. REMICADE [Suspect]
     Indication: COLITIS ULCERATIVE
     Route: 042
     Dates: start: 20110914
  2. REMICADE [Suspect]
     Route: 042
     Dates: start: 20110404
  3. REMICADE [Suspect]
     Route: 042
     Dates: start: 20110501

REACTIONS (3)
  - INFUSION RELATED REACTION [None]
  - ADVERSE EVENT [None]
  - COLITIS ULCERATIVE [None]
